FAERS Safety Report 25877283 (Version 1)
Quarter: 2025Q4

REPORT INFORMATION
  Report Type: Spontaneous
  Country: US (occurrence: US)
  Receive Date: 20251003
  Receipt Date: 20251003
  Transmission Date: 20260117
  Serious: No
  Sender: ROCHE
  Company Number: US-ROCHE-10000394669

PATIENT
  Sex: Male

DRUGS (15)
  1. AVASTIN [Suspect]
     Active Substance: BEVACIZUMAB
     Indication: Colorectal adenocarcinoma
     Route: 042
     Dates: start: 20250521
  2. AVASTIN [Suspect]
     Active Substance: BEVACIZUMAB
     Route: 042
     Dates: start: 20250611
  3. AVASTIN [Suspect]
     Active Substance: BEVACIZUMAB
     Route: 042
     Dates: start: 20250704
  4. AVASTIN [Suspect]
     Active Substance: BEVACIZUMAB
     Route: 042
     Dates: start: 20250722
  5. TIRAGOLUMAB [Suspect]
     Active Substance: TIRAGOLUMAB
     Indication: Colorectal adenocarcinoma
     Route: 042
     Dates: start: 20250521
  6. TIRAGOLUMAB [Suspect]
     Active Substance: TIRAGOLUMAB
     Route: 042
     Dates: start: 20250611
  7. TIRAGOLUMAB [Suspect]
     Active Substance: TIRAGOLUMAB
     Route: 042
     Dates: start: 20250704
  8. TIRAGOLUMAB [Suspect]
     Active Substance: TIRAGOLUMAB
     Route: 042
     Dates: start: 20250722
  9. TECENTRIQ [Suspect]
     Active Substance: ATEZOLIZUMAB
     Indication: Colorectal adenocarcinoma
     Route: 042
     Dates: start: 20250521
  10. TECENTRIQ [Suspect]
     Active Substance: ATEZOLIZUMAB
     Route: 042
     Dates: start: 20250611
  11. TECENTRIQ [Suspect]
     Active Substance: ATEZOLIZUMAB
     Route: 042
     Dates: start: 20250704
  12. TECENTRIQ [Suspect]
     Active Substance: ATEZOLIZUMAB
     Route: 042
     Dates: start: 20250722
  13. FLUOROURACIL\LEUCOVORIN CALCIUM\OXALIPLATIN [Concomitant]
     Active Substance: FLUOROURACIL\LEUCOVORIN CALCIUM\OXALIPLATIN
     Indication: Rectal cancer
  14. FLUOROURACIL\IRINOTECAN\LEUCOVORIN [Concomitant]
     Active Substance: FLUOROURACIL\IRINOTECAN\LEUCOVORIN
  15. LONSURF [Concomitant]
     Active Substance: TIPIRACIL HYDROCHLORIDE\TRIFLURIDINE
     Indication: Rectal cancer

REACTIONS (1)
  - Drug ineffective [Unknown]
